FAERS Safety Report 18202122 (Version 2)
Quarter: 2020Q3

REPORT INFORMATION
  Report Type: Spontaneous
  Country: US (occurrence: US)
  Receive Date: 20200827
  Receipt Date: 20200914
  Transmission Date: 20201103
  Serious: No
  Sender: FDA-Public Use
  Company Number: US-PFIZER INC-2020328205

PATIENT
  Age: 84 Year
  Sex: Male

DRUGS (1)
  1. INLYTA [Suspect]
     Active Substance: AXITINIB
     Indication: RENAL CANCER
     Dosage: 5 MG, 2X/DAY (TAKE 1 TABLET BY MOUTH EVERY 12 HOURS)
     Route: 048
     Dates: start: 202007

REACTIONS (2)
  - Mutism [Unknown]
  - Dysphonia [Unknown]

NARRATIVE: CASE EVENT DATE: 2020
